FAERS Safety Report 21519971 (Version 1)
Quarter: 2022Q4

REPORT INFORMATION
  Report Type: Spontaneous
  Country: PL (occurrence: PL)
  Receive Date: 20221028
  Receipt Date: 20221028
  Transmission Date: 20230112
  Serious: Yes (Other)
  Sender: FDA-Public Use
  Company Number: PL-ASTELLAS-2022US038208

PATIENT
  Age: 62 Year
  Sex: Male

DRUGS (1)
  1. ENZALUTAMIDE [Suspect]
     Active Substance: ENZALUTAMIDE
     Indication: Adenocarcinoma
     Dosage: UNK UNK, UNKNOWN FREQ. (RECEIVED SIX MONTHS- 1 COURSE IN TOTAL)
     Route: 065
     Dates: start: 20211214, end: 202206

REACTIONS (1)
  - Malignant neoplasm progression [Unknown]

NARRATIVE: CASE EVENT DATE: 20220601
